FAERS Safety Report 5223971-2 (Version None)
Quarter: 2007Q1

REPORT INFORMATION
  Report Type: 
  Country: None (occurrence: None)
  Receive Date: 20070130
  Receipt Date: 20070124
  Transmission Date: 20070707
  Serious: Yes (Life-Threatening)
  Sender: FDA-Public Use
  Company Number: NL-GLAXOSMITHKLINE-B0393501A

PATIENT
  Age: 41 Year
  Sex: Male

DRUGS (1)
  1. BUPROPION HYDROCHLORIDE [Suspect]
     Dosage: 150MG PER DAY
     Dates: start: 20050401, end: 20050405

REACTIONS (4)
  - ANXIETY [None]
  - DEPRESSION [None]
  - MUSCLE SPASMS [None]
  - SUICIDAL IDEATION [None]
